FAERS Safety Report 7075305-9 (Version None)
Quarter: 2010Q4

REPORT INFORMATION
  Report Type: 
  Country: None (occurrence: None)
  Receive Date: 20101030
  Receipt Date: 20100901
  Transmission Date: 20110411
  Serious: No
  Sender: FDA-Public Use
  Company Number: US-WYE-H16013810

PATIENT
  Sex: Female
  Weight: 141.65 kg

DRUGS (15)
  1. PRISTIQ [Suspect]
     Route: 048
     Dates: start: 20100618
  2. ALPRAZOLAM [Concomitant]
     Indication: ANXIETY
     Route: 065
     Dates: start: 20080111
  3. ALPRAZOLAM [Concomitant]
     Indication: SLEEP DISORDER
  4. GABAPENTIN [Concomitant]
     Indication: NEUROPATHY PERIPHERAL
     Dates: start: 20090731
  5. LEVOTHYROXINE SODIUM [Concomitant]
     Indication: HYPOTHYROIDISM
     Route: 065
     Dates: start: 20051212
  6. ESOMEPRAZOLE MAGNESIUM [Concomitant]
     Indication: GASTROOESOPHAGEAL REFLUX DISEASE
     Dosage: UNKNOWN
     Route: 065
  7. MIRTAZAPINE [Concomitant]
  8. SIMVASTATIN [Concomitant]
     Indication: BLOOD CHOLESTEROL INCREASED
     Dosage: UNKNOWN
     Route: 065
  9. FLUTICASONE PROPIONATE/SALMETEROL XINAFOATE [Concomitant]
     Indication: ASTHMA
     Dosage: UNKNOWN
     Route: 065
  10. FLUTICASONE PROPIONATE [Concomitant]
     Indication: ASTHMA
     Dosage: UNKNOWN
     Route: 065
  11. IPRATROPIUM BROMIDE [Concomitant]
     Indication: ASTHMA
     Dosage: UNKNOWN
     Route: 065
  12. IBUPROFEN [Concomitant]
     Indication: PAIN
     Dosage: UNKNOWN
     Route: 065
  13. ACETYLSALICYLIC ACID SRT [Concomitant]
     Indication: PAIN
     Dosage: UNKNOWN
     Route: 065
  14. MACROGOL [Concomitant]
  15. DULOXETINE [Concomitant]
     Indication: PAIN
     Dosage: UNKNOWN
     Route: 065

REACTIONS (5)
  - BLOOD GLUCOSE DECREASED [None]
  - DYSPEPSIA [None]
  - FEELING ABNORMAL [None]
  - IMPAIRED DRIVING ABILITY [None]
  - SOMNOLENCE [None]
